FAERS Safety Report 7592645-5 (Version None)
Quarter: 2011Q3

REPORT INFORMATION
  Report Type: 
  Country: None (occurrence: None)
  Receive Date: 20110706
  Receipt Date: 20110630
  Transmission Date: 20111222
  Serious: Yes (Hospitalization)
  Sender: FDA-Public Use
  Company Number: FR-PFIZER INC-2011145944

PATIENT
  Age: 79 Year
  Sex: Female

DRUGS (9)
  1. LASIX [Concomitant]
     Dosage: UNK
  2. FIXICAL [Concomitant]
  3. ASPIRIN [Suspect]
     Dosage: UNK
     Route: 048
  4. ZOLPIDEM [Concomitant]
     Dosage: UNK
  5. SECTRAL [Concomitant]
     Dosage: UNK
  6. DISCOTRINE [Concomitant]
  7. BONIVA [Concomitant]
  8. ATORVASTATIN CALCIUM [Suspect]
     Dosage: UNK
     Route: 048
  9. PREVISCAN [Suspect]
     Dosage: UNK
     Route: 048
     Dates: end: 20110510

REACTIONS (2)
  - MELAENA [None]
  - INTERNATIONAL NORMALISED RATIO INCREASED [None]
